FAERS Safety Report 5976522-9 (Version None)
Quarter: 2008Q4

REPORT INFORMATION
  Report Type: 
  Country: None (occurrence: None)
  Receive Date: 20081124
  Receipt Date: 20081113
  Transmission Date: 20090506
  Serious: Yes (Death, Life-Threatening, Hospitalization)
  Sender: FDA-Public Use
  Company Number: 2008-02504

PATIENT
  Age: 59 Year
  Sex: Male
  Weight: 79 kg

DRUGS (16)
  1. VELCADE [Suspect]
     Indication: MULTIPLE MYELOMA
     Dosage: 2.4 MG, INTRAVENOUS
     Route: 042
     Dates: start: 20080422, end: 20080607
  2. CYCLOPHOSPHAMIDE [Suspect]
     Indication: MULTIPLE MYELOMA
     Dosage: 1638 MG, INTRAVENOUS; 1686.3 MG, INTRAVENOUS
     Route: 042
     Dates: start: 20080422, end: 20080604
  3. CYCLOPHOSPHAMIDE [Suspect]
     Indication: MULTIPLE MYELOMA
     Dosage: 1638 MG, INTRAVENOUS; 1686.3 MG, INTRAVENOUS
     Route: 042
     Dates: start: 20080604, end: 20080607
  4. DEXAMETHASONE [Suspect]
     Indication: MULTIPLE MYELOMA
     Dosage: 40 MG, INTRAVENOUS
     Route: 042
     Dates: start: 20080422, end: 20080608
  5. ALLOPURINOL [Concomitant]
  6. RAMIPRIL [Concomitant]
  7. TORSEMIDE [Concomitant]
  8. LACTULOSE [Concomitant]
  9. METOPROLOL SUCCINATE [Concomitant]
  10. SIMVASTATIN [Concomitant]
  11. PANTOPRAZOLE SODIUM [Concomitant]
  12. AMPHO-MORONAL (AMPHOTERICIN B) [Concomitant]
  13. CLARITHROMYCIN [Concomitant]
  14. INSULIN HUMAN (INSULIN HUMAN) [Concomitant]
  15. INSUMAN RAPID (INSULIN HUMAN) [Concomitant]
  16. LOCERYL NAGELLACK (AMOROLFINE HYDROCHLORIDE) [Concomitant]

REACTIONS (19)
  - ABDOMINAL RIGIDITY [None]
  - ACUTE LEFT VENTRICULAR FAILURE [None]
  - ANURIA [None]
  - ASTHENIA [None]
  - BLOOD PRESSURE SYSTOLIC DECREASED [None]
  - BRADYARRHYTHMIA [None]
  - CARDIAC FAILURE ACUTE [None]
  - CARDIOVASCULAR INSUFFICIENCY [None]
  - CHOLECYSTITIS ACUTE [None]
  - CONFUSIONAL STATE [None]
  - COUGH [None]
  - DIALYSIS [None]
  - FEBRILE NEUTROPENIA [None]
  - HYPOTENSION [None]
  - MENTAL DISORDER [None]
  - ONYCHOMYCOSIS [None]
  - PULMONARY CONGESTION [None]
  - RASH [None]
  - THROMBOCYTOPENIA [None]
